FAERS Safety Report 9858431 (Version 3)
Quarter: 2014Q2

REPORT INFORMATION
  Report Type: Spontaneous
  Country: US (occurrence: US)
  Receive Date: 20140131
  Receipt Date: 20140415
  Transmission Date: 20141212
  Serious: Yes (Hospitalization)
  Sender: FDA-Public Use
  Company Number: US-SA-2013SA097849

PATIENT
  Age: 63 Year
  Sex: Female
  Weight: 58.96 kg

DRUGS (12)
  1. FABRAZYME [Suspect]
     Indication: FABRY^S DISEASE
     Route: 042
     Dates: start: 20030226
  2. FABRAZYME [Suspect]
     Indication: FABRY^S DISEASE
     Route: 042
  3. ZYLOPRIM [Concomitant]
     Route: 048
     Dates: end: 20140324
  4. NORVASC [Concomitant]
     Route: 048
     Dates: end: 20140324
  5. LIPITOR [Concomitant]
     Route: 048
  6. CAPOTEN [Concomitant]
     Route: 048
     Dates: end: 20140324
  7. COLCHICINE [Concomitant]
     Route: 048
     Dates: end: 20140324
  8. RESTASIS [Concomitant]
     Route: 031
     Dates: end: 20140324
  9. LASIX [Concomitant]
     Route: 048
     Dates: end: 20140324
  10. TOPROL XL [Concomitant]
     Route: 048
     Dates: end: 20140324
  11. DELTASONE [Concomitant]
     Route: 048
     Dates: end: 20140324
  12. COUMADIN [Concomitant]
     Route: 048
     Dates: end: 20140320

REACTIONS (4)
  - Cardiac failure congestive [Recovered/Resolved]
  - Chest pain [Unknown]
  - Dyspnoea [Unknown]
  - Pain [Unknown]
